FAERS Safety Report 13870030 (Version 1)
Quarter: 2017Q3

REPORT INFORMATION
  Report Type: Spontaneous
  Country: RO (occurrence: RO)
  Receive Date: 20170815
  Receipt Date: 20170815
  Transmission Date: 20171127
  Serious: Yes (Other)
  Sender: FDA-Public Use
  Company Number: RO-TEVA-795173ISR

PATIENT
  Age: 73 Year
  Sex: Female

DRUGS (1)
  1. ROSUVASTATIN. [Suspect]
     Active Substance: ROSUVASTATIN
     Indication: CARDIOVASCULAR DISORDER
     Dosage: 20 MILLIGRAM DAILY;
     Route: 048

REACTIONS (2)
  - Myopathy [Unknown]
  - Dermatomyositis [Unknown]
